FAERS Safety Report 9360133 (Version 1)
Quarter: 2013Q2

REPORT INFORMATION
  Report Type: Report from Study
  Country: CA (occurrence: CA)
  Receive Date: 20130621
  Receipt Date: 20130621
  Transmission Date: 20140414
  Serious: Yes (Death)
  Sender: FDA-Public Use
  Company Number: PHHY2011CA29675

PATIENT
  Age: 91 Year
  Sex: Male

DRUGS (4)
  1. ACLASTA [Suspect]
     Indication: OSTEOPOROSIS
     Dosage: UNK
     Route: 042
     Dates: start: 20090624
  2. ACLASTA [Suspect]
     Dosage: UNK
     Route: 042
     Dates: start: 20100628
  3. ACLASTA [Suspect]
     Dosage: UNK
     Route: 042
     Dates: start: 20110623
  4. ACLASTA [Suspect]
     Dosage: UNK
     Route: 042
     Dates: start: 20120623

REACTIONS (7)
  - Death [Fatal]
  - Haemoglobin decreased [Unknown]
  - Haematocrit decreased [Unknown]
  - Red blood cell count decreased [Unknown]
  - Mean cell haemoglobin increased [Unknown]
  - Muscle twitching [Unknown]
  - Procedural complication [Unknown]
